FAERS Safety Report 8688817 (Version 2)
Quarter: 2013Q3

REPORT INFORMATION
  Report Type: Spontaneous
  Country: US (occurrence: US)
  Receive Date: 20120727
  Receipt Date: 20130823
  Transmission Date: 20140515
  Serious: No
  Sender: FDA-Public Use
  Company Number: US-ASTRAZENECA-2011SE68508

PATIENT
  Age: 730 Month
  Sex: Female

DRUGS (4)
  1. SEROQUEL XR [Suspect]
     Indication: BIPOLAR I DISORDER
     Route: 048
  2. SEROQUEL XR [Suspect]
     Indication: BIPOLAR I DISORDER
     Route: 048
  3. NORCORITYLIN [Concomitant]
  4. SLUBOXA [Concomitant]

REACTIONS (6)
  - Activities of daily living impaired [Unknown]
  - Insomnia [Unknown]
  - Feeling abnormal [Unknown]
  - Hypersomnia [Unknown]
  - Dizziness [Unknown]
  - Drug dose omission [Unknown]
